FAERS Safety Report 7091577-9 (Version None)
Quarter: 2010Q4

REPORT INFORMATION
  Report Type: 
  Country: None (occurrence: None)
  Receive Date: 20101101
  Receipt Date: 20101018
  Transmission Date: 20110411
  Serious: Yes (Hospitalization, Other)
  Sender: FDA-Public Use
  Company Number: 728136

PATIENT
  Age: 25 Year
  Sex: Female

DRUGS (39)
  1. HEPARIN SODIUM INJECTION [Suspect]
     Indication: DEEP VEIN THROMBOSIS
     Dosage: 5000 UNITS, EVERY 8 HOURS, SUBCUTANEOUS, 8000 UNITS, ONCE, INTRAVENOUS BOLUS
     Route: 058
     Dates: start: 20080118, end: 20080128
  2. HEPARIN SODIUM INJECTION [Suspect]
     Indication: DEEP VEIN THROMBOSIS
     Dosage: 5000 UNITS, EVERY 8 HOURS, SUBCUTANEOUS, 8000 UNITS, ONCE, INTRAVENOUS BOLUS
     Route: 058
     Dates: start: 20080216, end: 20080216
  3. HEPARIN SODIUM INJECTION [Suspect]
     Indication: PULMONARY EMBOLISM
     Dosage: INTRAVENOUS DRIP
     Route: 041
     Dates: start: 20080216, end: 20080221
  4. HEPARIN SODIUM INJECTION [Suspect]
     Indication: DEEP VEIN THROMBOSIS
     Dosage: 5 ML, INTRAVENOUS, 100 UNITS
     Route: 042
     Dates: start: 20080226, end: 20080226
  5. HEPARIN SODIUM INJECTION [Suspect]
     Indication: DEEP VEIN THROMBOSIS
     Dosage: 5 ML, INTRAVENOUS, 100 UNITS
     Route: 042
     Dates: start: 20080226
  6. HEPARIN SODIUM [Suspect]
     Indication: PRODUCT USED FOR UNKNOWN INDICATION
     Dates: start: 20080101, end: 20080101
  7. ZOFRAN [Concomitant]
  8. PROMETHAZINE HYDROCHLORIDE (PROMETHAZINE HYDROCHLORIDE) [Concomitant]
  9. MORPHINE SULFATE INJ [Concomitant]
  10. TRAVASOL 10% [Concomitant]
  11. DEXTROSE (DEXTROSE) [Concomitant]
  12. INTRALIPID 10% [Concomitant]
  13. CALCIUM GLUCONATE [Concomitant]
  14. MAGNESIUM SULFATE [Concomitant]
  15. POTASSIUM CHLORIDE [Concomitant]
  16. SODIUM CHLORIDE 0.9% [Concomitant]
  17. MULTITRACE [Concomitant]
  18. M.V.I. ADULT (MAYNE) (MULTIVITAMIN) [Concomitant]
  19. FAMOTIDINE [Concomitant]
  20. VITAMIN K1 (VITAMIN K1) [Concomitant]
  21. VICODIN [Concomitant]
  22. FENTANYL CITRATE [Concomitant]
  23. LIDOCAINE HCL (LIDOCAINE HYDROCHLORIDE) [Concomitant]
  24. VERSED [Concomitant]
  25. METOCLOPRAMIDE [Concomitant]
  26. LASIX [Concomitant]
  27. SPIRONOLACTONE [Concomitant]
  28. REGAL [Concomitant]
  29. LEVAQUIN [Concomitant]
  30. FLAGYL [Concomitant]
  31. NEURONTIN [Concomitant]
  32. PROTONIX [Concomitant]
  33. AVELOX [Concomitant]
  34. WARFARIN [Concomitant]
  35. DIFLUCAN [Concomitant]
  36. CIMETIDINE [Concomitant]
  37. BELLADONNA EXTRACT [Concomitant]
  38. TORADOL [Concomitant]
  39. PERCOCET [Concomitant]

REACTIONS (14)
  - ABDOMINAL DISTENSION [None]
  - ABDOMINAL PAIN [None]
  - ADENOCARCINOMA [None]
  - CANDIDIASIS [None]
  - COLLAPSE OF LUNG [None]
  - CONSTIPATION [None]
  - CULTURE URINE POSITIVE [None]
  - DYSPNOEA [None]
  - INTESTINAL OBSTRUCTION [None]
  - METASTATIC NEOPLASM [None]
  - NAUSEA [None]
  - PLEURAL EFFUSION [None]
  - PULMONARY EMBOLISM [None]
  - VOMITING [None]
